FAERS Safety Report 5585740-3 (Version None)
Quarter: 2008Q1

REPORT INFORMATION
  Report Type: 
  Country: None (occurrence: None)
  Receive Date: 20080109
  Receipt Date: 20080108
  Transmission Date: 20080703
  Serious: No
  Sender: FDA-Public Use
  Company Number: PHNR2007AU01275

PATIENT
  Age: 69 Year
  Sex: Female

DRUGS (4)
  1. SANDOSTATIN [Suspect]
     Indication: ACROMEGALY
     Dosage: 100 UG, ONCE/SINGLE
     Route: 058
     Dates: start: 20070619, end: 20070619
  2. ATACAND [Concomitant]
     Dosage: 8MG
     Dates: start: 20050101
  3. NORVASK [Concomitant]
     Dosage: 5MG
     Dates: start: 20050101
  4. METFORMIN HCL [Concomitant]
     Dosage: 500 MG, BID
     Dates: start: 20030101

REACTIONS (5)
  - DIARRHOEA [None]
  - DIZZINESS [None]
  - NAUSEA [None]
  - ORTHOSTATIC HYPOTENSION [None]
  - VOMITING [None]
